FAERS Safety Report 20434724 (Version 1)
Quarter: 2022Q1

REPORT INFORMATION
  Report Type: Spontaneous
  Country: SE (occurrence: SE)
  Receive Date: 20220206
  Receipt Date: 20220206
  Transmission Date: 20220423
  Serious: Yes (Disabling)
  Sender: FDA-Public Use
  Company Number: None

PATIENT
  Age: 84 Year
  Sex: Female
  Weight: 60 kg

DRUGS (8)
  1. VALACYCLOVIR HYDROCHLORIDE [Suspect]
     Active Substance: VALACYCLOVIR HYDROCHLORIDE
     Indication: Herpes zoster
     Dosage: 3000 MG, QD (500MG 2 TABLETTER 3 GGR PER DAG)
     Route: 048
     Dates: start: 20220117, end: 20220120
  2. ESOMEPRAZOLE [Concomitant]
     Active Substance: ESOMEPRAZOLE
     Indication: Product used for unknown indication
     Dosage: 20 MG, QD (20 MG 1 TABLETT 1GGR / DAG)
     Route: 048
     Dates: start: 20170101
  3. PREDNISONE [Concomitant]
     Active Substance: PREDNISONE
     Indication: Product used for unknown indication
     Dosage: 25 MG, QD (2,5 MG 2 TABLETTER 5 GGR PER DAG I 5 DAGAR)
     Route: 048
     Dates: start: 20220117, end: 20220121
  4. PREDNISOLONE [Concomitant]
     Active Substance: PREDNISOLONE
     Indication: Product used for unknown indication
     Dosage: 5 MG, QD (5 MG 1 TABLETT /DAG)
     Route: 048
     Dates: start: 20150101
  5. REQUIP [Concomitant]
     Active Substance: ROPINIROLE HYDROCHLORIDE
     Indication: Product used for unknown indication
     Dosage: 4 MG, QD (2 MG 2 TABLETTER PER DAG)
     Route: 048
     Dates: start: 20180101
  6. CLOPIDOGREL [Concomitant]
     Active Substance: CLOPIDOGREL BISULFATE
     Indication: Product used for unknown indication
     Dosage: 75 MG, QD (75 MG 1 TABLETT PER DAG)
     Route: 048
     Dates: start: 20210219
  7. IMDUR [Concomitant]
     Active Substance: ISOSORBIDE MONONITRATE
     Indication: Product used for unknown indication
     Dosage: 30 MG, QD (30 MG 1 TABLETT PER DAG)
     Route: 048
     Dates: start: 20210219
  8. ASPIRIN [Concomitant]
     Active Substance: ASPIRIN
     Indication: Product used for unknown indication
     Dosage: 75 MG, QD (75 MG 1 TABLETT PER DAG)
     Route: 048
     Dates: start: 20150504

REACTIONS (11)
  - Hypoacusis [Not Recovered/Not Resolved]
  - Mental impairment [Recovering/Resolving]
  - Cough [Recovered/Resolved]
  - Gait disturbance [Not Recovered/Not Resolved]
  - Muscle spasms [Recovered/Resolved]
  - Erythema of eyelid [Recovering/Resolving]
  - Coordination abnormal [Recovering/Resolving]
  - Swelling of eyelid [Recovering/Resolving]
  - Diarrhoea [Recovering/Resolving]
  - Confusional state [Recovering/Resolving]
  - Rash pruritic [Not Recovered/Not Resolved]

NARRATIVE: CASE EVENT DATE: 20220117
